FAERS Safety Report 10089772 (Version 2)
Quarter: 2014Q2

REPORT INFORMATION
  Report Type: Spontaneous
  Country: US (occurrence: US)
  Receive Date: 20140421
  Receipt Date: 20140505
  Transmission Date: 20141212
  Serious: No
  Sender: FDA-Public Use
  Company Number: US-PFIZER INC-2014110505

PATIENT
  Age: 41 Year
  Sex: Female

DRUGS (4)
  1. LYRICA [Suspect]
     Dosage: 75 MG, 2X/DAY
     Route: 048
  2. NORCO [Concomitant]
     Dosage: [HYDROCODONE BITARTRATE 7.5MG]/ [PARACETAMOL 375MG] UNK
  3. ZANAFLEX [Concomitant]
     Dosage: 4 MG, 3X/DAY
  4. ATORVASTATIN [Concomitant]
     Dosage: 20 MG, DAILY

REACTIONS (1)
  - Drug ineffective [Unknown]
